FAERS Safety Report 7350558-8 (Version None)
Quarter: 2011Q1

REPORT INFORMATION
  Report Type: 
  Country: None (occurrence: None)
  Receive Date: 20110314
  Receipt Date: 20110308
  Transmission Date: 20110831
  Serious: Yes (Hospitalization, Other)
  Sender: FDA-Public Use
  Company Number: FR-PFIZER INC-2011050152

PATIENT
  Age: 52 Year
  Sex: Male

DRUGS (7)
  1. ENTOCORT EC [Suspect]
     Dosage: 3 MG, 1X/DAY
  2. PRASUGREL [Suspect]
     Dosage: 1 DF A DAY
     Route: 048
     Dates: start: 20100801, end: 20110202
  3. COVERSYL [Suspect]
     Dosage: 5 MG, 1X/DAY
     Route: 048
  4. TAHOR [Suspect]
     Dosage: 80 MG, 1X/DAY
     Route: 048
  5. ISOPTIN [Suspect]
     Dosage: 120 MG, 2X/DAY
     Route: 048
  6. OMACOR [Suspect]
     Route: 048
  7. KARDEGIC [Suspect]
     Dosage: 75 MG, 1X/DAY
     Route: 048
     Dates: start: 20100801

REACTIONS (2)
  - SHOCK HAEMORRHAGIC [None]
  - COLONOSCOPY [None]
